FAERS Safety Report 7455912-1 (Version None)
Quarter: 2011Q2

REPORT INFORMATION
  Report Type: 
  Country: None (occurrence: None)
  Receive Date: 20110503
  Receipt Date: 20110419
  Transmission Date: 20111010
  Serious: Yes (Other)
  Sender: FDA-Public Use
  Company Number: US-JNJFOC-20110107518

PATIENT
  Sex: Female
  Weight: 71.67 kg

DRUGS (3)
  1. REMICADE [Suspect]
     Route: 042
  2. REMICADE [Suspect]
     Indication: CROHN'S DISEASE
     Route: 042
  3. REMICADE [Suspect]
     Route: 042

REACTIONS (9)
  - HYPERSENSITIVITY [None]
  - OROPHARYNGEAL PAIN [None]
  - CHEST DISCOMFORT [None]
  - THROAT TIGHTNESS [None]
  - RESPIRATORY DISORDER [None]
  - ANXIETY [None]
  - PRURITUS [None]
  - INFUSION RELATED REACTION [None]
  - URTICARIA [None]
